FAERS Safety Report 22678036 (Version 7)
Quarter: 2025Q2

REPORT INFORMATION
  Report Type: Spontaneous
  Country: US (occurrence: US)
  Receive Date: 20230706
  Receipt Date: 20250611
  Transmission Date: 20250717
  Serious: No
  Sender: SANOFI AVENTIS
  Company Number: US-SA-SAC20230705000107

PATIENT
  Age: 64 Year
  Sex: Female

DRUGS (2)
  1. DUPIXENT [Suspect]
     Active Substance: DUPILUMAB
     Indication: Dermatitis atopic
     Route: 058
     Dates: start: 20230702, end: 20230702
  2. DUPIXENT [Suspect]
     Active Substance: DUPILUMAB
     Indication: Dermatitis
     Dosage: 300 MG, QOW
     Route: 058
     Dates: start: 202307

REACTIONS (11)
  - Injection site mass [Recovered/Resolved]
  - Eyelid margin crusting [Recovered/Resolved]
  - Gingival recession [Recovered/Resolved]
  - Dermatitis [Unknown]
  - Toothache [Recovered/Resolved]
  - Pruritus [Unknown]
  - Eye pruritus [Recovered/Resolved]
  - Injection site pain [Not Recovered/Not Resolved]
  - Eczema [Recovered/Resolved]
  - Therapeutic response shortened [Unknown]
  - Product use in unapproved indication [Unknown]

NARRATIVE: CASE EVENT DATE: 20230101
